FAERS Safety Report 24041609 (Version 1)
Quarter: 2024Q3

REPORT INFORMATION
  Report Type: Spontaneous
  Country: US (occurrence: US)
  Receive Date: 20240702
  Receipt Date: 20240702
  Transmission Date: 20241017
  Serious: No
  Sender: SAREPTA THERAPEUTICS
  Company Number: US-SAREPTA THERAPEUTICS INC.-SRP2023-004119

PATIENT
  Age: 1 Year
  Sex: Male
  Weight: 10.431 kg

DRUGS (3)
  1. EXONDYS 51 [Suspect]
     Active Substance: ETEPLIRSEN
     Indication: Duchenne muscular dystrophy
     Dosage: 300 MILLIGRAM, WEEKLY
     Route: 042
     Dates: start: 2023
  2. EXONDYS 51 [Suspect]
     Active Substance: ETEPLIRSEN
     Dosage: 300 MILLIGRAM, WEEKLY
     Route: 042
     Dates: start: 20231208
  3. EXONDYS 51 [Suspect]
     Active Substance: ETEPLIRSEN
     Dosage: 300 MILLIGRAM, WEEKLY
     Route: 042
     Dates: start: 20231215

REACTIONS (2)
  - Croup infectious [Recovered/Resolved]
  - Nasopharyngitis [Recovered/Resolved]

NARRATIVE: CASE EVENT DATE: 20231209
